FAERS Safety Report 8005602-1 (Version None)
Quarter: 2011Q4

REPORT INFORMATION
  Report Type: 
  Country: None (occurrence: None)
  Receive Date: 20111223
  Receipt Date: 20111221
  Transmission Date: 20120403
  Serious: Yes (Other)
  Sender: FDA-Public Use
  Company Number: GB-PFIZER INC-2011013855

PATIENT
  Age: 60 Year

DRUGS (7)
  1. MIRTAZAPINE [Suspect]
     Indication: DEPRESSION
     Dosage: UNK
     Route: 065
  2. CETIRIZINE [Suspect]
     Dosage: 10 MG, 1X/DAY
     Route: 066
  3. VALSARTAN [Suspect]
     Dosage: 120 MG, 1X/DAY
     Route: 065
  4. COLCHICINE [Suspect]
     Dosage: 1 MG, 1X/DAY
     Route: 065
  5. ALLOPURINOL [Suspect]
     Dosage: 300 MG, 1X/DAY
     Route: 065
  6. DOXAZOSIN MESILATE [Suspect]
     Dosage: 4 MG, 1X/DAY
     Route: 065
  7. METFORMIN HCL [Suspect]
     Dosage: 1500 MG, 1X/DAY
     Route: 065

REACTIONS (1)
  - PANCREATITIS ACUTE [None]
